FAERS Safety Report 4807935-6 (Version None)
Quarter: 2005Q4

REPORT INFORMATION
  Report Type: 
  Country: None (occurrence: None)
  Receive Date: 20051024
  Receipt Date: 20051013
  Transmission Date: 20060501
  Serious: Yes (Hospitalization)
  Sender: FDA-Public Use
  Company Number: DE-MERCK-0510DEU00074

PATIENT
  Age: 53 Year
  Sex: Male

DRUGS (4)
  1. CRIXIVAN [Suspect]
     Indication: HIV INFECTION
     Route: 048
     Dates: start: 19990101, end: 20000518
  2. STAVUDINE [Concomitant]
     Route: 065
     Dates: start: 19990101
  3. DIDANOSINE [Concomitant]
     Route: 065
     Dates: start: 19990101, end: 20040814
  4. NEVIRAPINE [Concomitant]
     Route: 065
     Dates: start: 19990101, end: 20000518

REACTIONS (10)
  - ABDOMINAL WALL DISORDER [None]
  - CACHEXIA [None]
  - FAT TISSUE INCREASED [None]
  - MULTI-ORGAN DISORDER [None]
  - PYREXIA [None]
  - RASH PUSTULAR [None]
  - RHONCHI [None]
  - SYPHILIS [None]
  - SYSTEMIC MYCOSIS [None]
  - VASODILATATION [None]
